FAERS Safety Report 17333338 (Version 2)
Quarter: 2020Q1

REPORT INFORMATION
  Report Type: Spontaneous
  Country: JP (occurrence: JP)
  Receive Date: 20200128
  Receipt Date: 20200129
  Transmission Date: 20200409
  Serious: Yes (Other)
  Sender: FDA-Public Use
  Company Number: JP-PFIZER INC-2020033876

PATIENT

DRUGS (1)
  1. SELARA 25MG [Suspect]
     Active Substance: EPLERENONE

REACTIONS (1)
  - Blood potassium decreased [Unknown]
